FAERS Safety Report 10931008 (Version 1)
Quarter: 2015Q1

REPORT INFORMATION
  Report Type: Spontaneous
  Country: US (occurrence: None)
  Receive Date: 20150225
  Receipt Date: 20150225
  Transmission Date: 20150721
  Serious: Yes (Hospitalization)
  Sender: FDA-Public Use
  Company Number: 2014-US-013046

PATIENT
  Age: 51 Year
  Sex: Male

DRUGS (3)
  1. MORPHINE SULFATE (MORPHINE SULFATE) [Suspect]
     Active Substance: MORPHINE SULFATE
     Indication: PAIN
  2. BUPIVACAINE HYDROCHLORIDE. [Suspect]
     Active Substance: BUPIVACAINE HYDROCHLORIDE
  3. PRIALT [Suspect]
     Active Substance: ZICONOTIDE ACETATE
     Indication: PAIN
     Route: 037

REACTIONS (16)
  - Gait disturbance [None]
  - Diarrhoea [None]
  - Anxiety [None]
  - Post-traumatic stress disorder [None]
  - Device issue [None]
  - Condition aggravated [None]
  - Malaise [None]
  - Discomfort [None]
  - Somnolence [None]
  - Hypoaesthesia [None]
  - Back pain [None]
  - Weight decreased [None]
  - Peripheral swelling [None]
  - Renal failure [None]
  - Fall [None]
  - Memory impairment [None]

NARRATIVE: CASE EVENT DATE: 201409
